FAERS Safety Report 6847273-3 (Version None)
Quarter: 2010Q3

REPORT INFORMATION
  Report Type: 
  Country: None (occurrence: None)
  Receive Date: 20100716
  Receipt Date: 20100712
  Transmission Date: 20110219
  Serious: Yes (Hospitalization)
  Sender: FDA-Public Use
  Company Number: DE-WYE-G05770010

PATIENT
  Sex: Female
  Weight: 50 kg

DRUGS (10)
  1. TORISEL [Suspect]
     Indication: MANTLE CELL LYMPHOMA
     Route: 042
     Dates: start: 20100218, end: 20100311
  2. TORISEL [Suspect]
     Route: 042
     Dates: start: 20100415, end: 20100610
  3. IBUPROFEN [Concomitant]
  4. PANTOPRAZOLE [Concomitant]
  5. FOSAMAX [Concomitant]
     Dates: end: 20100317
  6. RAMIPRIL [Concomitant]
     Route: 048
  7. CALCIUM PHOSPHATE DIBASIC/COLECALCIFEROL [Concomitant]
     Route: 048
  8. LEVOTHYROXINE SODIUM [Concomitant]
     Route: 048
  9. PAMIDRONATE DISODIUM [Concomitant]
     Indication: MANTLE CELL LYMPHOMA
     Route: 042
     Dates: start: 20090604, end: 20100308
  10. DIMETINDENE MALEATE [Concomitant]
     Indication: PREMEDICATION
     Dosage: 4 MG, PRIOR TO TORISEL INFUSION
     Route: 042
     Dates: start: 20100218

REACTIONS (4)
  - ATRIAL FIBRILLATION [None]
  - GASTROENTERITIS [None]
  - PLEURAL EFFUSION [None]
  - PNEUMOTHORAX TRAUMATIC [None]
